FAERS Safety Report 10908387 (Version 1)
Quarter: 2015Q1

REPORT INFORMATION
  Report Type: Spontaneous
  Country: US (occurrence: None)
  Receive Date: 20150309
  Receipt Date: 20150309
  Transmission Date: 20150721
  Serious: Yes (Other)
  Sender: FDA-Public Use
  Company Number: None

PATIENT
  Age: 61 Year
  Sex: Male
  Weight: 65.77 kg

DRUGS (6)
  1. TERASOZIN [Concomitant]
  2. VIRAMUNE [Concomitant]
     Active Substance: NEVIRAPINE
  3. TRUVADA [Concomitant]
     Active Substance: EMTRICITABINE\TENOFOVIR DISOPROXIL FUMARATE
  4. TRUVADA [Suspect]
     Active Substance: EMTRICITABINE\TENOFOVIR DISOPROXIL FUMARATE
     Dosage: 1
     Route: 048
  5. FENASTERIDE [Concomitant]
  6. CENTRUM MULTI [Concomitant]

REACTIONS (7)
  - Rash generalised [None]
  - Prostatomegaly [None]
  - Urticaria [None]
  - Bacterial infection [None]
  - Acarodermatitis [None]
  - Rash erythematous [None]
  - Scratch [None]

NARRATIVE: CASE EVENT DATE: 20150303
